FAERS Safety Report 13425540 (Version 1)
Quarter: 2017Q2

REPORT INFORMATION
  Report Type: Spontaneous
  Country: US (occurrence: US)
  Receive Date: 20170411
  Receipt Date: 20170411
  Transmission Date: 20170830
  Serious: No
  Sender: FDA-Public Use
  Company Number: US-TEVA-756685ACC

PATIENT
  Age: 45 Year
  Sex: Female

DRUGS (6)
  1. METRONIDAZOL [Concomitant]
     Active Substance: METRONIDAZOLE
  2. BACLOFEN. [Concomitant]
     Active Substance: BACLOFEN
  3. COPAXONE [Suspect]
     Active Substance: GLATIRAMER ACETATE
     Indication: MULTIPLE SCLEROSIS
     Route: 058
     Dates: start: 20130604
  4. DESONIDE. [Concomitant]
     Active Substance: DESONIDE
  5. TYLENOL [Concomitant]
     Active Substance: ACETAMINOPHEN
  6. MODAFINIL. [Concomitant]
     Active Substance: MODAFINIL

REACTIONS (1)
  - Chest discomfort [Unknown]

NARRATIVE: CASE EVENT DATE: 201603
